FAERS Safety Report 14653021 (Version 1)
Quarter: 2018Q1

REPORT INFORMATION
  Report Type: Spontaneous
  Country: FR (occurrence: FR)
  Receive Date: 20180319
  Receipt Date: 20180319
  Transmission Date: 20180509
  Serious: Yes (Other)
  Sender: FDA-Public Use
  Company Number: FR-ABBVIE-18P-056-2286402-00

PATIENT
  Age: 33 Year
  Sex: Female

DRUGS (1)
  1. DEPAKINE [Suspect]
     Active Substance: VALPROATE SODIUM
     Indication: PETIT MAL EPILEPSY
     Route: 048
     Dates: start: 20171020, end: 20171117

REACTIONS (8)
  - Anterograde amnesia [Recovering/Resolving]
  - Nystagmus [Recovering/Resolving]
  - Nausea [Recovering/Resolving]
  - Cerebellar syndrome [Recovering/Resolving]
  - Hemiparesis [Recovering/Resolving]
  - Asthenia [Recovering/Resolving]
  - Psychomotor skills impaired [Recovering/Resolving]
  - Vision blurred [Recovering/Resolving]

NARRATIVE: CASE EVENT DATE: 20171102
